FAERS Safety Report 16366124 (Version 1)
Quarter: 2019Q2

REPORT INFORMATION
  Report Type: Spontaneous
  Country: DE (occurrence: DE)
  Receive Date: 20190529
  Receipt Date: 20190529
  Transmission Date: 20190711
  Serious: Yes (Other)
  Sender: FDA-Public Use
  Company Number: PHHY2019DE122761

PATIENT
  Age: 70 Year
  Sex: Female

DRUGS (1)
  1. METOHEXAL SUCC [Suspect]
     Active Substance: METOPROLOL SUCCINATE
     Indication: HYPERTENSION
     Dosage: 1 OT, QD
     Route: 065

REACTIONS (1)
  - Body temperature decreased [Not Recovered/Not Resolved]
